FAERS Safety Report 7824893-0 (Version None)
Quarter: 2011Q4

REPORT INFORMATION
  Report Type: 
  Country: None (occurrence: None)
  Receive Date: 20111019
  Receipt Date: 20110217
  Transmission Date: 20120403
  Serious: No
  Sender: FDA-Public Use
  Company Number: US-BRISTOL-MYERS SQUIBB COMPANY-15555972

PATIENT
  Age: 61 Year
  Sex: Female
  Weight: 75 kg

DRUGS (5)
  1. EVISTA [Concomitant]
  2. SYNTHROID [Concomitant]
  3. NORVASC [Concomitant]
  4. AVALIDE [Suspect]
     Dosage: 1DF=300/25MG STARTED ATLEAST 3YRS AGO LOT NO:9D43939A
  5. LIPITOR [Concomitant]

REACTIONS (1)
  - BLOOD PRESSURE INCREASED [None]
